FAERS Safety Report 8232965-4 (Version None)
Quarter: 2012Q1

REPORT INFORMATION
  Report Type: 
  Country: None (occurrence: None)
  Receive Date: 20120325
  Receipt Date: 20120312
  Transmission Date: 20120608
  Serious: Yes (Other)
  Sender: FDA-Public Use
  Company Number: JP-BRISTOL-MYERS SQUIBB COMPANY-16450991

PATIENT
  Age: 72 Year
  Sex: Female

DRUGS (2)
  1. CARBOPLATIN [Suspect]
     Indication: UTERINE CANCER
     Dosage: 1DF: 5 AUC
     Dates: start: 20090601
  2. PACLITAXEL [Suspect]
     Indication: UTERINE CANCER
     Dosage: RESTARTDE ON JAN2010
     Dates: start: 20090601

REACTIONS (6)
  - NEUROPATHY PERIPHERAL [None]
  - LEUKOPENIA [None]
  - MYALGIA [None]
  - NEUTROPENIA [None]
  - ALCOHOL INTOLERANCE [None]
  - ARTHRALGIA [None]
